FAERS Safety Report 11001370 (Version 1)
Quarter: 2015Q2

REPORT INFORMATION
  Report Type: Spontaneous
  Country: US (occurrence: US)
  Receive Date: 20150408
  Receipt Date: 20150408
  Transmission Date: 20150821
  Serious: No
  Sender: FDA-Public Use
  Company Number: US-SA-2015SA029052

PATIENT
  Age: 69 Year
  Sex: Female

DRUGS (1)
  1. ALLEGRA [Suspect]
     Active Substance: FEXOFENADINE HYDROCHLORIDE
     Indication: CHRONIC SINUSITIS
     Dosage: TAKEN FROM: 3-4 YEARS?DOSAGE: ALLEGRA 24 HOUR ONCE A DAY
     Route: 048

REACTIONS (2)
  - Hypoacusis [Unknown]
  - Drug ineffective [Unknown]
